FAERS Safety Report 18915913 (Version 4)
Quarter: 2022Q1

REPORT INFORMATION
  Report Type: Report from Study
  Country: GB (occurrence: GB)
  Receive Date: 20210219
  Receipt Date: 20220222
  Transmission Date: 20220423
  Serious: Yes (Other)
  Sender: FDA-Public Use
  Company Number: GB-TAKEDA-2021TUS009717

PATIENT
  Age: 68 Year
  Sex: Male

DRUGS (1)
  1. VEDOLIZUMAB [Suspect]
     Active Substance: VEDOLIZUMAB
     Indication: Colitis ulcerative
     Dosage: 108 MILLIGRAM
     Route: 058
     Dates: start: 202012, end: 202202

REACTIONS (5)
  - Colitis ulcerative [Recovered/Resolved]
  - Cellulitis [Unknown]
  - COVID-19 [Unknown]
  - Lower respiratory tract infection [Unknown]
  - Drug ineffective [Unknown]
